FAERS Safety Report 7299768-9 (Version None)
Quarter: 2011Q1

REPORT INFORMATION
  Report Type: 
  Country: None (occurrence: None)
  Receive Date: 20110217
  Receipt Date: 20110208
  Transmission Date: 20110831
  Serious: Yes (Hospitalization)
  Sender: FDA-Public Use
  Company Number: IT-JNJFOC-20110203266

PATIENT
  Age: 11 Month
  Sex: Male
  Weight: 10 kg

DRUGS (4)
  1. ACETAMINOPHEN [Suspect]
  2. CLARITHROMYCIN [Suspect]
     Indication: UPPER RESPIRATORY TRACT INFECTION
     Dosage: 15 MG/KG PER DAY FOR 7 DAYS
  3. ACETAMINOPHEN [Suspect]
     Dosage: THREE 12 MG/KG DOSES IN THREE HOURS
  4. ACETAMINOPHEN [Suspect]
     Indication: PYREXIA

REACTIONS (2)
  - HEPATITIS FULMINANT [None]
  - INCORRECT DOSE ADMINISTERED [None]
